FAERS Safety Report 18978931 (Version 2)
Quarter: 2021Q1

REPORT INFORMATION
  Report Type: Spontaneous
  Country: IE (occurrence: IE)
  Receive Date: 20210308
  Receipt Date: 20210329
  Transmission Date: 20210420
  Serious: Yes (Other)
  Sender: FDA-Public Use
  Company Number: IE-OCTA-WIL00621IE

PATIENT
  Age: 28 Year
  Sex: Female
  Weight: 73.5 kg

DRUGS (2)
  1. WILATE ? VON WILLEBRAND FACTOR/COAGULATION FACTOR VIII COMPLEX (HUMAN) [Suspect]
     Active Substance: HUMAN COAGULATION FACTOR VIII/VON WILLEBRAND FACTOR COMPLEX
     Indication: VON WILLEBRAND^S DISEASE
     Dosage: VIA BUTTERFLY,RECHALLENGE 05?FEB?2021 (K015D189X2)
     Route: 042
     Dates: start: 20210201
  2. OVRANETTE COATED TABLETS 30/150 MICROGRAM [Concomitant]
     Indication: CONTRACEPTION

REACTIONS (8)
  - Peripheral coldness [Recovered/Resolved]
  - Oxygen saturation decreased [Recovered/Resolved]
  - Visual impairment [Recovered/Resolved]
  - Hypoperfusion [Recovered/Resolved]
  - Flushing [Recovered/Resolved]
  - Rash [Recovered/Resolved]
  - Chest discomfort [Recovered/Resolved]
  - Heart rate decreased [Recovered/Resolved]

NARRATIVE: CASE EVENT DATE: 20210201
